FAERS Safety Report 23538407 (Version 1)
Quarter: 2024Q1

REPORT INFORMATION
  Report Type: Spontaneous
  Country: FR (occurrence: FR)
  Receive Date: 20240219
  Receipt Date: 20240219
  Transmission Date: 20240409
  Serious: Yes (Life-Threatening, Hospitalization)
  Sender: FDA-Public Use
  Company Number: None

PATIENT
  Age: 25 Year
  Sex: Male
  Weight: 175 kg

DRUGS (6)
  1. CARBOPLATIN [Suspect]
     Active Substance: CARBOPLATIN
     Indication: Testicular germ cell tumour
     Dosage: 500 MILLIGRAM
     Route: 042
     Dates: start: 20231022, end: 20231209
  2. ETOPOSIDE [Suspect]
     Active Substance: ETOPOSIDE
     Indication: Testicular germ cell tumour
     Dosage: 300 MILLIGRAM
     Route: 042
     Dates: start: 20231022, end: 20231209
  3. IFOSFAMIDE [Suspect]
     Active Substance: IFOSFAMIDE
     Indication: Testicular germ cell tumour
     Dosage: 4784.3 MILLIGRAM
     Route: 042
     Dates: start: 20231022, end: 20231209
  4. MESNA [Suspect]
     Active Substance: MESNA
     Indication: Testicular germ cell tumour
     Dosage: 5760 MILLIGRAM
     Route: 042
     Dates: start: 20231022, end: 20231209
  5. PREDNISOLONE [Concomitant]
     Active Substance: PREDNISOLONE
     Indication: Testicular germ cell tumour
     Dosage: 10 MILLIGRAM, QD
     Route: 048
     Dates: end: 20240106
  6. VALACYCLOVIR HYDROCHLORIDE [Concomitant]
     Active Substance: VALACYCLOVIR HYDROCHLORIDE
     Indication: Antiviral prophylaxis
     Dosage: 1 GRAM, QD
     Route: 048
     Dates: end: 20231222

REACTIONS (2)
  - Hypokalaemia [Recovering/Resolving]
  - Renal tubular disorder [Recovering/Resolving]

NARRATIVE: CASE EVENT DATE: 20231211
